FAERS Safety Report 6657574-X (Version None)
Quarter: 2010Q1

REPORT INFORMATION
  Report Type: 
  Country: None (occurrence: None)
  Receive Date: 20100319
  Receipt Date: 20090420
  Transmission Date: 20100710
  Serious: Yes (Other)
  Sender: FDA-Public Use
  Company Number: 2009SP008291

PATIENT
  Age: 51 Year
  Sex: Female
  Weight: 115.7126 kg

DRUGS (8)
  1. PEG-INTRON [Suspect]
     Indication: HEPATITIS C
  2. RIBAVIRIN [Suspect]
     Indication: HEPATITIS C
     Dosage: 800 MG;QD;PO
     Route: 048
     Dates: end: 20060101
  3. RIBAVIRIN [Suspect]
     Indication: HEPATITIS C
     Dosage: 800 MG;QD;PO
     Route: 048
     Dates: start: 20090219, end: 20090228
  4. PEGASYS [Suspect]
     Indication: HEPATITIS C
     Dates: end: 20060101
  5. ALTACE [Concomitant]
  6. NORVASC [Concomitant]
  7. CRESTOR [Concomitant]
  8. INSULIN [Concomitant]

REACTIONS (3)
  - DYSPNOEA [None]
  - NO THERAPEUTIC RESPONSE [None]
  - RASH [None]
